FAERS Safety Report 16843640 (Version 1)
Quarter: 2019Q3

REPORT INFORMATION
  Report Type: Spontaneous
  Country: JP (occurrence: JP)
  Receive Date: 20190924
  Receipt Date: 20190924
  Transmission Date: 20191005
  Serious: Yes (Other)
  Sender: FDA-Public Use
  Company Number: JP-RECORDATI RARE DISEASES INC.-JP-R13005-19-00276

PATIENT
  Age: 8 Month
  Sex: Female

DRUGS (4)
  1. CYCLOPHOSPHAMIDE HYDRATE [Suspect]
     Active Substance: CYCLOPHOSPHAMIDE
     Indication: RHABDOMYOSARCOMA
     Route: 065
  2. MIDAZOLAM [Concomitant]
     Active Substance: MIDAZOLAM HYDROCHLORIDE
     Indication: SEIZURE
     Route: 065
  3. COSMEGEN [Suspect]
     Active Substance: DACTINOMYCIN
     Indication: RHABDOMYOSARCOMA
     Route: 065
  4. VINCRISTINE SULFATE. [Suspect]
     Active Substance: VINCRISTINE SULFATE
     Indication: RHABDOMYOSARCOMA
     Route: 065

REACTIONS (2)
  - Thrombocytopenia [Unknown]
  - Seizure [Unknown]
